FAERS Safety Report 5253147-4 (Version None)
Quarter: 2007Q1

REPORT INFORMATION
  Report Type: 
  Country: None (occurrence: None)
  Receive Date: 20070301
  Receipt Date: 20070226
  Transmission Date: 20070707
  Serious: Yes (Hospitalization, Other)
  Sender: FDA-Public Use
  Company Number: 13668033

PATIENT
  Age: 14 Year
  Sex: Female

DRUGS (9)
  1. LAMIVUDINE [Suspect]
     Indication: HIV INFECTION
     Dosage: 12ML TWICE PER DAY
     Route: 048
     Dates: start: 20051005
  2. ATAZANAVIR SULFATE [Suspect]
     Indication: HIV INFECTION
     Dosage: 400MG PER DAY
     Route: 048
     Dates: start: 20051005
  3. STAVUDINE [Suspect]
     Indication: HIV INFECTION
     Dosage: 30MG TWICE PER DAY
     Route: 048
     Dates: start: 20051005
  4. BACTRIM [Concomitant]
     Dates: start: 20050801
  5. MULTI-VITAMIN [Concomitant]
     Dates: start: 20050801
  6. LASIX [Concomitant]
     Dates: start: 20060501
  7. ALDACTONE [Concomitant]
     Dates: start: 20060501
  8. AUGMENTIN '125' [Concomitant]
  9. LOSEC [Concomitant]
     Dates: start: 20060401

REACTIONS (6)
  - ALANINE AMINOTRANSFERASE INCREASED [None]
  - ASPARTATE AMINOTRANSFERASE INCREASED [None]
  - CARDIAC FAILURE [None]
  - HYPERBILIRUBINAEMIA [None]
  - LUNG DISORDER [None]
  - RESPIRATORY TRACT INFECTION [None]
